FAERS Safety Report 5357363-2 (Version None)
Quarter: 2007Q2

REPORT INFORMATION
  Report Type: 
  Country: None (occurrence: None)
  Receive Date: 20070614
  Receipt Date: 20070605
  Transmission Date: 20071010
  Serious: Yes (Hospitalization)
  Sender: FDA-Public Use
  Company Number: B0470354A

PATIENT
  Age: 69 Year
  Sex: Male
  Weight: 82 kg

DRUGS (3)
  1. AVANDAMET [Suspect]
     Route: 048
     Dates: start: 20051214, end: 20061222
  2. ALFACALCIDOL [Concomitant]
     Dates: start: 20061016
  3. STATINS [Concomitant]
     Dates: end: 20061222

REACTIONS (4)
  - ABDOMINAL PAIN [None]
  - BLOOD ALKALINE PHOSPHATASE INCREASED [None]
  - GAMMA-GLUTAMYLTRANSFERASE INCREASED [None]
  - HEPATIC ENZYME INCREASED [None]
